FAERS Safety Report 9158647 (Version 1)
Quarter: 2013Q1

REPORT INFORMATION
  Report Type: Report from Study
  Country: BR (occurrence: BR)
  Receive Date: 20130312
  Receipt Date: 20130312
  Transmission Date: 20140127
  Serious: Yes (Hospitalization)
  Sender: FDA-Public Use
  Company Number: BR-ABBOTT-13P-020-1061713-00

PATIENT
  Age: 53 None
  Sex: Female
  Weight: 73 kg

DRUGS (3)
  1. HUMIRA [Suspect]
     Indication: RHEUMATOID ARTHRITIS
     Route: 058
     Dates: end: 201209
  2. HUMIRA [Suspect]
     Route: 058
     Dates: start: 201210
  3. ATENOLOL [Concomitant]
     Indication: HEART RATE INCREASED
     Route: 048
     Dates: start: 20130130

REACTIONS (5)
  - Herpes virus infection [Recovered/Resolved]
  - Rash [Recovered/Resolved]
  - Abdominal pain [Recovered/Resolved]
  - Nasopharyngitis [Recovered/Resolved]
  - Cough [Not Recovered/Not Resolved]
